FAERS Safety Report 5175448-0 (Version None)
Quarter: 2006Q4

REPORT INFORMATION
  Report Type: 
  Country: None (occurrence: None)
  Receive Date: 20061215
  Receipt Date: 20061129
  Transmission Date: 20070319
  Serious: Yes (Hospitalization, Other)
  Sender: FDA-Public Use
  Company Number: PHBS2006BE18724

PATIENT
  Age: 66 Year
  Sex: Female

DRUGS (5)
  1. CO-DIOVAN [Suspect]
     Indication: HYPERTENSION
     Dosage: 160/25 MG/DAY
     Route: 048
     Dates: start: 20060701, end: 20061001
  2. MOXON [Concomitant]
  3. PRAVASTATIN [Concomitant]
  4. PANADOL [Concomitant]
  5. FLOXAPEN [Concomitant]

REACTIONS (2)
  - HYPONATRAEMIA [None]
  - WRIST FRACTURE [None]
